FAERS Safety Report 7497275-1 (Version None)
Quarter: 2011Q2

REPORT INFORMATION
  Report Type: 
  Country: None (occurrence: None)
  Receive Date: 20110523
  Receipt Date: 20110511
  Transmission Date: 20111010
  Serious: Yes (Hospitalization, Other)
  Sender: FDA-Public Use
  Company Number: PHEH2006US09222

PATIENT
  Sex: Male

DRUGS (55)
  1. AVAPRO [Concomitant]
  2. ZOLOFT [Concomitant]
     Dosage: 150 MG, UNK
  3. PERCOCET [Concomitant]
  4. NAPROXEN [Concomitant]
     Indication: ARTHRITIS
     Dosage: 250 MG, UNK
  5. NYSTATIN [Concomitant]
     Dosage: UNK
  6. LACTULOSE [Concomitant]
     Dosage: 10 GM/15 ML
  7. BICALUTAMIDE [Concomitant]
     Dosage: 50 MG
  8. FENTANYL [Concomitant]
  9. LOVASTATIN [Concomitant]
  10. ZOMETA [Suspect]
     Indication: METASTASES TO BONE
     Dosage: ONCE PER MONTH
     Dates: start: 20030516, end: 20051101
  11. ZOCOR [Concomitant]
  12. GOSERELIN ACETATE [Concomitant]
     Dosage: 10.8 MG
     Route: 058
  13. TEMAZ [Concomitant]
     Dosage: 30 MG
  14. CLOPIDOGREL BISULFATE [Concomitant]
     Dosage: 75 MG
  15. PENICILLIN VK [Concomitant]
     Dosage: 250 MG
  16. PLAVIX [Concomitant]
  17. HYTRIN [Concomitant]
  18. LOSARTAN [Concomitant]
     Dosage: 25 MG, UNK
  19. MULTI-VITAMINS [Concomitant]
  20. LOVAZA [Concomitant]
  21. CHEMOTHERAPEUTICS NOS [Concomitant]
  22. AMOXICILLIN [Concomitant]
     Dosage: 250 MG
  23. SENOKOT                                 /UNK/ [Concomitant]
  24. TIAZAC [Concomitant]
  25. PREDNISONE [Concomitant]
  26. ASPIRIN [Concomitant]
     Dosage: 81 MG, UNK
  27. TRILISATE [Concomitant]
  28. OMEPRAZOLE [Concomitant]
     Dosage: 20 MG
  29. TERAZOSIN HYDROCHLORIDE [Concomitant]
     Dosage: 2.MG
  30. RESTORIL [Concomitant]
  31. OXYBUTYNIN CHLORIDE [Concomitant]
     Dosage: 5 MG
  32. SERTRALINE HYDROCHLORIDE [Concomitant]
     Dosage: 100 MG
  33. NITROGLYCERIN [Concomitant]
     Dosage: 0.4 MG
  34. DETROL [Concomitant]
     Dosage: 4 MG, UNK
  35. NIACIN [Concomitant]
  36. DEXAMETHASONE [Concomitant]
     Dosage: UNK, BID
  37. CALCIUM CARBONATE [Concomitant]
  38. CASODEX [Concomitant]
  39. OXYCODONE HCL [Concomitant]
     Dosage: 10 MG, UNK
  40. SIMVASTATIN [Concomitant]
     Dosage: 80 MG
  41. DOCUSATE CALCIUM [Concomitant]
     Dosage: 240 MG
  42. SENNA-MINT WAF [Concomitant]
     Dosage: 8.6 MG
  43. CHLORHEXIDINE GLUCONATE [Concomitant]
     Dosage: UNK
  44. PROCRIT                            /00909301/ [Concomitant]
  45. OXYCONTIN [Concomitant]
  46. TYLENOL W/ CODEINE NO. 3 [Concomitant]
  47. FERROUS SULFATE TAB [Concomitant]
  48. MEVACOR [Concomitant]
  49. VASOTEC [Concomitant]
  50. VANCOMYCIN [Concomitant]
  51. XOPENEX [Concomitant]
  52. ZOLADEX [Concomitant]
  53. FAMCICLOVIR [Concomitant]
     Dosage: 500 MG
  54. IRBESARTAN [Concomitant]
     Dosage: 300 MG
  55. TAXOTERE [Concomitant]

REACTIONS (50)
  - BONE DISORDER [None]
  - STOMATITIS [None]
  - MASTICATION DISORDER [None]
  - ANXIETY [None]
  - FALL [None]
  - NEOPLASM MALIGNANT [None]
  - NASAL SEPTUM DEVIATION [None]
  - CARDIOMEGALY [None]
  - DEMENTIA [None]
  - OSTEONECROSIS OF JAW [None]
  - ARRHYTHMIA [None]
  - PLEURAL EFFUSION [None]
  - PAIN [None]
  - SUBDURAL HAEMATOMA [None]
  - PURPURA [None]
  - CHRONIC OBSTRUCTIVE PULMONARY DISEASE [None]
  - SWELLING [None]
  - BONE LOSS [None]
  - VERTEBRAL FORAMINAL STENOSIS [None]
  - RIB FRACTURE [None]
  - DEAFNESS NEUROSENSORY [None]
  - OTITIS EXTERNA [None]
  - HAEMORRHAGE INTRACRANIAL [None]
  - ANAEMIA [None]
  - CEREBRAL ISCHAEMIA [None]
  - CEREBRAL ATROPHY [None]
  - LUNG INFILTRATION [None]
  - PULMONARY VASCULAR DISORDER [None]
  - INJURY [None]
  - SCOLIOSIS [None]
  - SPINAL CORD COMPRESSION [None]
  - HAEMOGLOBIN DECREASED [None]
  - ORAL DISORDER [None]
  - HAEMATOCRIT DECREASED [None]
  - ORAL PAIN [None]
  - TOOTH LOSS [None]
  - BONE PAIN [None]
  - SYNCOPE [None]
  - INTERVERTEBRAL DISC PROTRUSION [None]
  - SPINAL OSTEOARTHRITIS [None]
  - HAEMATOCHEZIA [None]
  - HYPERTONIC BLADDER [None]
  - LACERATION [None]
  - LACUNAR INFARCTION [None]
  - PNEUMONIA [None]
  - LEFT VENTRICULAR DYSFUNCTION [None]
  - INFECTION [None]
  - RENAL CYST [None]
  - HEAD INJURY [None]
  - CONFUSIONAL STATE [None]
